FAERS Safety Report 25168650 (Version 2)
Quarter: 2025Q3

REPORT INFORMATION
  Report Type: Spontaneous
  Country: US (occurrence: US)
  Receive Date: 20250407
  Receipt Date: 20250714
  Transmission Date: 20251020
  Serious: No
  Sender: INTRA-CELLULAR THERAPIES
  Company Number: US-INTRA-CELLULAR THERAPIES, INC.-2025ICT00236

PATIENT
  Age: 42 Year
  Sex: Female
  Weight: 87.8 kg

DRUGS (9)
  1. CAPLYTA [Suspect]
     Active Substance: LUMATEPERONE
     Dosage: 42 MG, 1X/DAY, BEDTIME
     Route: 048
     Dates: start: 20250130, end: 20250131
  2. ABILIFY [Suspect]
     Active Substance: ARIPIPRAZOLE
     Dosage: UNK UNK, 1X/DAY
     Dates: end: 20250129
  3. ABILIFY [Suspect]
     Active Substance: ARIPIPRAZOLE
     Dosage: UNK UNK, 2X/DAY
     Dates: start: 20250130
  4. REXULTI [Concomitant]
     Active Substance: BREXPIPRAZOLE
  5. RITALIN [Concomitant]
     Active Substance: METHYLPHENIDATE HYDROCHLORIDE
     Dates: end: 20250210
  6. QELBREE [Concomitant]
     Active Substance: VILOXAZINE HYDROCHLORIDE
     Dates: end: 20250210
  7. LEVOTHYROXINE [Concomitant]
     Active Substance: LEVOTHYROXINE
  8. UBRELVY [Concomitant]
     Active Substance: UBROGEPANT
  9. AUVELITY [Concomitant]
     Active Substance: BUPROPION HYDROCHLORIDE\DEXTROMETHORPHAN HYDROBROMIDE

REACTIONS (8)
  - Migraine [Recovered/Resolved]
  - Hot flush [Recovered/Resolved]
  - Feeling of body temperature change [Recovered/Resolved]
  - Phonophobia [Recovered/Resolved]
  - Photophobia [Recovered/Resolved]
  - Hypotension [Recovered/Resolved]
  - Nausea [Recovered/Resolved]
  - Dizziness [Recovered/Resolved]

NARRATIVE: CASE EVENT DATE: 20250130
